FAERS Safety Report 19270364 (Version 1)
Quarter: 2021Q2

REPORT INFORMATION
  Report Type: Spontaneous
  Country: US (occurrence: US)
  Receive Date: 20210518
  Receipt Date: 20210518
  Transmission Date: 20210717
  Serious: Yes (Other)
  Sender: FDA-Public Use
  Company Number: None

PATIENT
  Age: 71 Year
  Sex: Female

DRUGS (5)
  1. IBRANCE [Suspect]
     Active Substance: PALBOCICLIB
     Indication: BREAST CANCER
     Dosage: ?          OTHER FREQUENCY:21 DAYS +  7 OFF;?
     Route: 048
     Dates: start: 20191209, end: 20210504
  2. ONDASETRON [Concomitant]
     Active Substance: ONDANSETRON
  3. LOSARTAN. [Concomitant]
     Active Substance: LOSARTAN
  4. RESTASIS [Concomitant]
     Active Substance: CYCLOSPORINE
  5. DICLOFENAC [Concomitant]
     Active Substance: DICLOFENAC

REACTIONS (1)
  - Haemoglobin decreased [None]

NARRATIVE: CASE EVENT DATE: 20210504
